FAERS Safety Report 9203762 (Version 2)
Quarter: 2013Q4

REPORT INFORMATION
  Report Type: Spontaneous
  Country: TN (occurrence: TN)
  Receive Date: 20130402
  Receipt Date: 20131001
  Transmission Date: 20140711
  Serious: Yes (Other)
  Sender: FDA-Public Use
  Company Number: TN-BRISTOL-MYERS SQUIBB COMPANY-18707125

PATIENT
  Sex: 0

DRUGS (1)
  1. BARACLUDE [Suspect]
     Indication: CHRONIC HEPATITIS B
     Route: 048
     Dates: start: 20090908

REACTIONS (3)
  - Obstructed labour [Recovered/Resolved]
  - Pregnancy [Recovered/Resolved]
  - Live birth [Unknown]
